FAERS Safety Report 20254186 (Version 1)
Quarter: 2021Q4

REPORT INFORMATION
  Report Type: Spontaneous
  Country: US (occurrence: US)
  Receive Date: 20211230
  Receipt Date: 20211230
  Transmission Date: 20220304
  Serious: No
  Sender: FDA-Public Use
  Company Number: US-SA-SAC20211229000397

PATIENT
  Age: 76 Year
  Sex: Male

DRUGS (22)
  1. DUPIXENT [Suspect]
     Active Substance: DUPILUMAB
     Indication: Dermatitis atopic
  2. ALLOPURINOL [Concomitant]
     Active Substance: ALLOPURINOL
  3. TORSEMIDE [Concomitant]
     Active Substance: TORSEMIDE
     Indication: Cardiac failure
  4. DOXYCYCLINE HYCLATE [Concomitant]
     Active Substance: DOXYCYCLINE HYCLATE
  5. CLOBETASOL PROPIONATE [Concomitant]
     Active Substance: CLOBETASOL PROPIONATE
  6. MUPIROCIN [Concomitant]
     Active Substance: MUPIROCIN
  7. HYDRALAZINE [Concomitant]
     Active Substance: HYDRALAZINE HYDROCHLORIDE
     Indication: Cardiac failure
  8. ECONAZOLE [Concomitant]
     Active Substance: ECONAZOLE
  9. CARVEDILOL [Concomitant]
     Active Substance: CARVEDILOL
     Indication: Cardiac failure
  10. UMECLIDINIUM BROMIDE\VILANTEROL TRIFENATATE [Concomitant]
     Active Substance: UMECLIDINIUM BROMIDE\VILANTEROL TRIFENATATE
  11. ALBUTEROL SULFATE [Concomitant]
     Active Substance: ALBUTEROL SULFATE
     Indication: Asthma
  12. ISOSORBIDE DINITRATE [Concomitant]
     Active Substance: ISOSORBIDE DINITRATE
     Indication: Cardiac failure
  13. AMOXICILLIN [Concomitant]
     Active Substance: AMOXICILLIN
  14. ECONAZOLE NITRATE [Concomitant]
     Active Substance: ECONAZOLE NITRATE
  15. CALCITRIOL [Concomitant]
     Active Substance: CALCITRIOL
  16. XARELTO [Concomitant]
     Active Substance: RIVAROXABAN
  17. ATORVASTATIN CALCIUM [Concomitant]
     Active Substance: ATORVASTATIN CALCIUM
  18. CLOTRIMAZOLE [Concomitant]
     Active Substance: CLOTRIMAZOLE
  19. PRAMOXINE [Concomitant]
     Active Substance: PRAMOXINE
     Indication: Pruritus
  20. HYDROCORTISONE [Concomitant]
     Active Substance: HYDROCORTISONE
  21. ALPRAZOLAM [Concomitant]
     Active Substance: ALPRAZOLAM
  22. GABAPENTIN [Concomitant]
     Active Substance: GABAPENTIN

REACTIONS (1)
  - Injection site pruritus [Unknown]
